FAERS Safety Report 9483396 (Version 1)
Quarter: 2013Q3

REPORT INFORMATION
  Report Type: Spontaneous
  Country: US (occurrence: US)
  Receive Date: 20130828
  Receipt Date: 20130828
  Transmission Date: 20140515
  Serious: Yes (Death, Hospitalization)
  Sender: FDA-Public Use
  Company Number: US-AMGEN-KDL264289

PATIENT
  Age: 76 Year
  Sex: Female

DRUGS (1)
  1. PROCRIT [Suspect]
     Indication: ANAEMIA OF MALIGNANT DISEASE
     Dosage: UNK UNK, UNK
     Route: 065

REACTIONS (2)
  - Metastatic carcinoma of the bladder [Fatal]
  - Blood count abnormal [Unknown]
